FAERS Safety Report 5453824-6 (Version None)
Quarter: 2007Q3

REPORT INFORMATION
  Report Type: 
  Country: None (occurrence: None)
  Receive Date: 20070917
  Receipt Date: 20070910
  Transmission Date: 20080115
  Serious: Yes (Death)
  Sender: FDA-Public Use
  Company Number: A0680167A

PATIENT
  Age: 82 Year
  Sex: Male

DRUGS (8)
  1. ADVAIR DISKUS 100/50 [Suspect]
     Indication: ASTHMA
     Route: 055
  2. UNSPECIFIED MEDICATION [Concomitant]
  3. ICAPS [Concomitant]
  4. ASPIRIN [Concomitant]
  5. NEXIUM [Concomitant]
  6. OXYGEN [Concomitant]
  7. SPIRIVA [Concomitant]
  8. PREDNISONE TAB [Concomitant]

REACTIONS (1)
  - NEOPLASM MALIGNANT [None]
